FAERS Safety Report 8796368 (Version 1)
Quarter: 2012Q4

REPORT INFORMATION
  Report Type: Report from Study
  Country: US (occurrence: US)
  Receive Date: 20120919
  Receipt Date: 20120919
  Transmission Date: 20130627
  Serious: Yes (Hospitalization)
  Sender: FDA-Public Use
  Company Number: US-ABBOTT-12P-163-0978865-00

PATIENT
  Age: 34 None
  Sex: Male

DRUGS (1)
  1. HUMIRA [Suspect]
     Indication: CROHN^S DISEASE
     Dates: end: 201202

REACTIONS (9)
  - Diabetic ketoacidosis [Recovering/Resolving]
  - Depressed level of consciousness [Recovered/Resolved]
  - Abdominal pain [Recovering/Resolving]
  - Nausea [Recovering/Resolving]
  - Vomiting [Recovered/Resolved]
  - Diarrhoea [Recovering/Resolving]
  - Dehydration [Unknown]
  - Crohn^s disease [Recovering/Resolving]
  - Diabetes mellitus inadequate control [Recovering/Resolving]
